FAERS Safety Report 17874730 (Version 2)
Quarter: 2020Q3

REPORT INFORMATION
  Report Type: Report from Study
  Country: GB (occurrence: GB)
  Receive Date: 20200609
  Receipt Date: 20200929
  Transmission Date: 20201103
  Serious: Yes (Other)
  Sender: FDA-Public Use
  Company Number: NVSC2020GB104680

PATIENT
  Age: 56 Year
  Sex: Male

DRUGS (1)
  1. COSENTYX [Suspect]
     Active Substance: SECUKINUMAB
     Indication: PSORIASIS
     Dosage: 300 MG, QMO
     Route: 065

REACTIONS (7)
  - Lung disorder [Unknown]
  - Skin irritation [Unknown]
  - Product dose omission issue [Unknown]
  - Psoriasis [Unknown]
  - Pain [Unknown]
  - COVID-19 [Unknown]
  - Condition aggravated [Unknown]
